FAERS Safety Report 23597403 (Version 1)
Quarter: 2024Q1

REPORT INFORMATION
  Report Type: Report from Study
  Country: CA (occurrence: CA)
  Receive Date: 20240305
  Receipt Date: 20240305
  Transmission Date: 20240410
  Serious: Yes (Other)
  Sender: FDA-Public Use
  Company Number: CA-VER-202400186

PATIENT
  Age: 76 Year
  Sex: Male

DRUGS (4)
  1. TRIPTORELIN PAMOATE [Suspect]
     Active Substance: TRIPTORELIN PAMOATE
     Indication: Prostate cancer
     Dosage: 11.25 MILLIGRAM(0.125 MILLIGRAM)  1 IN 3 MONTH, POWDER FOR PROLONGED-RELEASE SUSPENSION FOR INJECT.
     Route: 030
     Dates: start: 20230215, end: 20230215
  2. TRIPTORELIN PAMOATE [Suspect]
     Active Substance: TRIPTORELIN PAMOATE
     Indication: Prostate cancer
     Dosage: 11.25 MILLIGRAM(0.125 MILLIGRAM)  1 IN 3 MONTH, POWDER FOR PROLONGED-RELEASE SUSPENSION FOR INJECT.
     Route: 030
     Dates: start: 20230518, end: 20230518
  3. TRIPTORELIN PAMOATE [Suspect]
     Active Substance: TRIPTORELIN PAMOATE
     Indication: Prostate cancer
     Dosage: 11.25 MILLIGRAM(0.125 MILLIGRAM)  1 IN 3 MONTH, POWDER FOR PROLONGED-RELEASE SUSPENSION FOR INJECT.
     Route: 030
     Dates: start: 20230821, end: 20230821
  4. TRIPTORELIN PAMOATE [Suspect]
     Active Substance: TRIPTORELIN PAMOATE
     Indication: Prostate cancer
     Dosage: 11.25 MILLIGRAM(0.125 MILLIGRAM)  1 IN 3 MONTH, POWDER FOR PROLONGED-RELEASE SUSPENSION FOR INJECT.
     Route: 030
     Dates: start: 20231120, end: 20231120

REACTIONS (2)
  - Blood pressure systolic increased [Unknown]
  - Prostatic operation [Unknown]

NARRATIVE: CASE EVENT DATE: 20231120
